FAERS Safety Report 17678470 (Version 1)
Quarter: 2020Q2

REPORT INFORMATION
  Report Type: Spontaneous
  Country: US (occurrence: US)
  Receive Date: 20200417
  Receipt Date: 20200417
  Transmission Date: 20200714
  Serious: Yes (Other)
  Sender: FDA-Public Use
  Company Number: US-SHILPA MEDICARE LIMITED-SML-US-2020-00138

PATIENT
  Sex: Female

DRUGS (1)
  1. CAPECITABINE, UNKNOWN [Suspect]
     Active Substance: CAPECITABINE
     Indication: TRIPLE NEGATIVE BREAST CANCER
     Route: 065

REACTIONS (1)
  - Radiation skin injury [Unknown]
